FAERS Safety Report 5897731-3 (Version None)
Quarter: 2008Q3

REPORT INFORMATION
  Report Type: 
  Country: None (occurrence: None)
  Receive Date: 20080925
  Receipt Date: 20080916
  Transmission Date: 20090109
  Serious: Yes (Other)
  Sender: FDA-Public Use
  Company Number: PHHY2008DK21965

PATIENT
  Sex: Male

DRUGS (2)
  1. RITALIN TAB [Suspect]
     Route: 048
  2. RITALIN [Suspect]

REACTIONS (2)
  - DEPRESSION [None]
  - SUICIDAL IDEATION [None]
